FAERS Safety Report 9578448 (Version 1)
Quarter: 2013Q4

REPORT INFORMATION
  Report Type: Spontaneous
  Country: US (occurrence: US)
  Receive Date: 20131001
  Receipt Date: 20131001
  Transmission Date: 20140711
  Serious: No
  Sender: FDA-Public Use
  Company Number: US-AMGEN-USASP2013013619

PATIENT
  Age: 51 Year
  Sex: Male
  Weight: 117.91 kg

DRUGS (12)
  1. ENBREL [Suspect]
     Indication: PSORIASIS
     Dosage: 50 MG, QWK
     Route: 058
  2. DOVONEX [Concomitant]
     Dosage: 0.005 %, UNK
  3. CLOBETASOL 0.05% [Concomitant]
     Dosage: 0.05 %, UNK
  4. PEPCID AC [Concomitant]
     Dosage: 10 MG, UNK
     Route: 048
  5. PREVACID [Concomitant]
     Dosage: 15 MG, UNK
     Route: 048
  6. BENICAR [Concomitant]
     Dosage: 40 MG, UNK
     Route: 048
  7. LIPITOR [Concomitant]
     Dosage: 80 MG, UNK
     Route: 048
  8. FOLIC ACID [Concomitant]
     Dosage: 1 MG, UNK
     Route: 048
  9. LUVOX [Concomitant]
     Dosage: 100 MG, UNK
     Route: 048
  10. WELLBUTRIN [Concomitant]
     Dosage: 75 MG, UNK
     Route: 048
  11. FISH OIL [Concomitant]
     Dosage: UNK
     Route: 048
  12. ASPIRIN CHILDREN [Concomitant]
     Dosage: 81 MG, UNK
     Route: 048

REACTIONS (2)
  - Furuncle [Recovered/Resolved]
  - Injection site pruritus [Unknown]
